FAERS Safety Report 5878039-9 (Version None)
Quarter: 2008Q3

REPORT INFORMATION
  Report Type: 
  Country: None (occurrence: None)
  Receive Date: 20080911
  Receipt Date: 20080901
  Transmission Date: 20090109
  Serious: Yes (Hospitalization)
  Sender: FDA-Public Use
  Company Number: JP-JNJFOC-20080705206

PATIENT
  Age: 74 Year
  Sex: Female

DRUGS (4)
  1. RISPERDAL [Suspect]
     Indication: SCHIZOPHRENIA
     Route: 048
  2. FAMOTIDINE [Concomitant]
  3. AKINETON [Concomitant]
  4. COOLSPAN [Concomitant]

REACTIONS (2)
  - DEHYDRATION [None]
  - POSTURE ABNORMAL [None]
